FAERS Safety Report 13873791 (Version 1)
Quarter: 2017Q3

REPORT INFORMATION
  Report Type: Spontaneous
  Country: US (occurrence: US)
  Receive Date: 20170816
  Receipt Date: 20170816
  Transmission Date: 20171127
  Serious: No
  Sender: FDA-Public Use
  Company Number: US-ELI_LILLY_AND_COMPANY-US201708005229

PATIENT
  Sex: Female

DRUGS (1)
  1. DARVON-N W/ ASA [Suspect]
     Active Substance: ASPIRIN\PROPOXYPHENE NAPSYLATE
     Indication: PRODUCT USED FOR UNKNOWN INDICATION
     Dosage: UNK, UNKNOWN
     Route: 065

REACTIONS (2)
  - Drug hypersensitivity [None]
  - Hypersensitivity [Unknown]
